FAERS Safety Report 25287058 (Version 1)
Quarter: 2025Q2

REPORT INFORMATION
  Report Type: Spontaneous
  Country: US (occurrence: None)
  Receive Date: 20250508
  Receipt Date: 20250508
  Transmission Date: 20250716
  Serious: Yes (unspecified)
  Sender: FDA-CTU
  Company Number: None

PATIENT
  Age: 56 Year
  Sex: Female

DRUGS (7)
  1. VENCLEXTA [Suspect]
     Active Substance: VENETOCLAX
     Indication: Diffuse large B-cell lymphoma
     Dosage: FREQUENCY : DAILY;?
     Route: 048
  2. IBRUTINIB [Suspect]
     Active Substance: IBRUTINIB
  3. RITUXIMAB [Suspect]
     Active Substance: RITUXIMAB
  4. CYCLOPHOSPHAMIDE [Suspect]
     Active Substance: CYCLOPHOSPHAMIDE
  5. DOXORUBICIN [Suspect]
     Active Substance: DOXORUBICIN
  6. VINCRISTINE [Suspect]
     Active Substance: VINCRISTINE
  7. PREDNISONE [Suspect]
     Active Substance: PREDNISONE

REACTIONS (10)
  - Neutropenia [None]
  - Thrombocytopenia [None]
  - Therapy interrupted [None]
  - Anxiety [None]
  - Decreased appetite [None]
  - Asthenia [None]
  - Lethargy [None]
  - Dysphagia [None]
  - Decreased appetite [None]
  - Fluid intake reduced [None]
